FAERS Safety Report 6326455-3 (Version None)
Quarter: 2009Q3

REPORT INFORMATION
  Report Type: 
  Country: None (occurrence: None)
  Receive Date: 20090825
  Receipt Date: 20090820
  Transmission Date: 20100115
  Serious: Yes (Other)
  Sender: FDA-Public Use
  Company Number: US-TEVA-206526USA

PATIENT
  Age: 60 Year
  Sex: Female

DRUGS (3)
  1. CARBOPLATIN [Suspect]
  2. DOCETAXEL [Suspect]
     Dosage: CYC
     Route: 042
  3. TRASTUZUMAB [Suspect]

REACTIONS (1)
  - PANCREATITIS ACUTE [None]
